FAERS Safety Report 18042105 (Version 1)
Quarter: 2020Q3

REPORT INFORMATION
  Report Type: Spontaneous
  Country: CN (occurrence: CN)
  Receive Date: 20200720
  Receipt Date: 20200720
  Transmission Date: 20201103
  Serious: Yes (Hospitalization)
  Sender: FDA-Public Use
  Company Number: CN-TERSERA THERAPEUTICS LLC-2020TRS002035

PATIENT

DRUGS (2)
  1. GOSERELIN [Suspect]
     Active Substance: GOSERELIN
     Indication: CHEMOTHERAPY
     Dosage: 3.6MG + 0.9% SODIUM CHLORIDE;1 ML; ONCE/SINGLE ADMINISTRATION
     Route: 058
     Dates: start: 20200530, end: 20200530
  2. LOBAPLATIN [Suspect]
     Active Substance: LOBAPLATIN
     Indication: CHEMOTHERAPY
     Dosage: 50MG + 5% GLUCOSE; 250ML; ONCE/SINGLE ADMINISTRATION
     Route: 041
     Dates: start: 20200603, end: 20200603

REACTIONS (1)
  - Myelosuppression [Recovering/Resolving]

NARRATIVE: CASE EVENT DATE: 20200616
